FAERS Safety Report 14140148 (Version 3)
Quarter: 2017Q4

REPORT INFORMATION
  Report Type: Spontaneous
  Country: JP (occurrence: JP)
  Receive Date: 20171030
  Receipt Date: 20171117
  Transmission Date: 20180321
  Serious: Yes (Life-Threatening, Hospitalization, Other)
  Sender: FDA-Public Use
  Company Number: JP-ACCORD-060298

PATIENT
  Age: 21 Year
  Sex: Male

DRUGS (1)
  1. AMITRIPTYLINE [Suspect]
     Active Substance: AMITRIPTYLINE
     Indication: DEPRESSION

REACTIONS (8)
  - Intestinal obstruction [Recovering/Resolving]
  - Seizure [Recovering/Resolving]
  - Coma [Not Recovered/Not Resolved]
  - Brain injury [Not Recovered/Not Resolved]
  - Ventricular tachycardia [Recovered/Resolved]
  - Abdominal compartment syndrome [Recovering/Resolving]
  - Ventricular fibrillation [Recovered/Resolved]
  - Toxicity to various agents [Unknown]
